FAERS Safety Report 16486941 (Version 1)
Quarter: 2019Q3

REPORT INFORMATION
  Report Type: Spontaneous
  Country: US (occurrence: US)
  Receive Date: 20190625
  Receipt Date: 20190625
  Transmission Date: 20191004
  Serious: No
  Sender: FDA-Public Use
  Company Number: None

PATIENT
  Age: 39 Year
  Sex: Male
  Weight: 99 kg

DRUGS (4)
  1. LUPINE GENERIC DESVENLAFAXINE [Suspect]
     Active Substance: DESVENLAFAXINE
     Indication: MAJOR DEPRESSION
     Dates: start: 20190501, end: 20190501
  2. PRILOSEC [Concomitant]
     Active Substance: OMEPRAZOLE MAGNESIUM
  3. LUPINE GENERIC DESVENLAFAXINE [Suspect]
     Active Substance: DESVENLAFAXINE
     Indication: PANIC DISORDER
     Dates: start: 20190501, end: 20190501
  4. LIPITOR [Concomitant]
     Active Substance: ATORVASTATIN CALCIUM

REACTIONS (13)
  - Withdrawal syndrome [None]
  - Fatigue [None]
  - Self esteem decreased [None]
  - Product substitution issue [None]
  - Malaise [None]
  - Dizziness [None]
  - Manufacturing materials issue [None]
  - Panic reaction [None]
  - Depression [None]
  - Dissociation [None]
  - Presyncope [None]
  - Hyperhidrosis [None]
  - Product quality issue [None]

NARRATIVE: CASE EVENT DATE: 20190501
